FAERS Safety Report 21280510 (Version 1)
Quarter: 2022Q3

REPORT INFORMATION
  Report Type: Spontaneous
  Country: US (occurrence: US)
  Receive Date: 20220901
  Receipt Date: 20220901
  Transmission Date: 20221027
  Serious: Yes (Other)
  Sender: FDA-Public Use
  Company Number: US-PHARMING-PHAUS2022000590

PATIENT

DRUGS (1)
  1. RUCONEST [Suspect]
     Active Substance: HUMAN C1-ESTERASE INHIBITOR
     Indication: Maternal exposure during pregnancy
     Dosage: UNK
     Route: 064

REACTIONS (3)
  - Fever neonatal [Unknown]
  - Meconium in amniotic fluid [Unknown]
  - Foetal heart rate decreased [Unknown]
